FAERS Safety Report 9685874 (Version 2)
Quarter: 2014Q1

REPORT INFORMATION
  Report Type: Spontaneous
  Country: CA (occurrence: None)
  Receive Date: 20131108
  Receipt Date: 20140130
  Transmission Date: 20141002
  Serious: Yes (Hospitalization)
  Sender: FDA-Public Use
  Company Number: CA-013487

PATIENT
  Age: 64 Year
  Sex: Male

DRUGS (9)
  1. FIRMAGON [Suspect]
     Indication: PROSTATE CANCER
     Dosage: (80 MG 1X/ 4 WEEKS SUBCUTANEOUS)
     Route: 058
     Dates: start: 20130828
  2. ADVIL [Concomitant]
  3. DIOVAN [Concomitant]
  4. EURO-FER [Concomitant]
  5. CRESTOR [Concomitant]
  6. VITAMIN D SUPPORT [Concomitant]
  7. CALCIUM [Concomitant]
  8. OMEGA /00661201/ [Concomitant]
  9. METAMUCIL / 00029101/ [Concomitant]

REACTIONS (6)
  - Groin pain [None]
  - Arthralgia [None]
  - Scrotal pain [None]
  - Injection site mass [None]
  - Arthralgia [None]
  - Muscle spasms [None]
